FAERS Safety Report 25996369 (Version 2)
Quarter: 2025Q4

REPORT INFORMATION
  Report Type: Report from Study
  Country: PH (occurrence: PH)
  Receive Date: 20251104
  Receipt Date: 20251226
  Transmission Date: 20260118
  Serious: Yes (Death, Hospitalization)
  Sender: OTSUKA
  Company Number: PH-MMM-Otsuka-21KYGNVM

PATIENT
  Sex: Female

DRUGS (2)
  1. TOLVAPTAN [Suspect]
     Active Substance: TOLVAPTAN
     Indication: Polyuria
     Dosage: 1 DF, DAILY (15 MG 1 TABLET A DAY)
     Route: 061
  2. TOLVAPTAN [Suspect]
     Active Substance: TOLVAPTAN
     Dosage: 1 DF, BID [15 MG 1 TABLET A DAY IN THE MORNING (AM) AND IN THE EVENING (PM)]
     Route: 061
     Dates: end: 20251222

REACTIONS (5)
  - Cardiac failure [Fatal]
  - Peripheral swelling [Unknown]
  - Abdominal distension [Unknown]
  - Inappropriate schedule of product administration [Unknown]
  - Overdose [Unknown]
